FAERS Safety Report 15377022 (Version 2)
Quarter: 2018Q3

REPORT INFORMATION
  Report Type: Spontaneous
  Country: US (occurrence: US)
  Receive Date: 20180913
  Receipt Date: 20180918
  Transmission Date: 20181010
  Serious: Yes (Disabling, Other)
  Sender: FDA-Public Use
  Company Number: US-EMD SERONO-9043413

PATIENT
  Sex: Female

DRUGS (1)
  1. REBIF [Suspect]
     Active Substance: INTERFERON BETA-1A
     Indication: PRODUCT USED FOR UNKNOWN INDICATION
     Route: 058

REACTIONS (6)
  - Cognitive disorder [Unknown]
  - Temperature intolerance [Unknown]
  - Blindness unilateral [Unknown]
  - Speech disorder [Unknown]
  - Optic neuritis [Unknown]
  - Visual impairment [Unknown]
